FAERS Safety Report 23093249 (Version 2)
Quarter: 2023Q4

REPORT INFORMATION
  Report Type: Spontaneous
  Country: KZ (occurrence: KZ)
  Receive Date: 20231022
  Receipt Date: 20231101
  Transmission Date: 20240109
  Serious: Yes (Death)
  Sender: FDA-Public Use
  Company Number: KZ-002147023-NVSC2023KZ226361

PATIENT
  Sex: Female

DRUGS (4)
  1. TAFINLAR [Suspect]
     Active Substance: DABRAFENIB MESYLATE
     Indication: Metastatic malignant melanoma
     Dosage: 150 MG, BID
     Route: 048
     Dates: start: 2019
  2. MEKINIST [Suspect]
     Active Substance: TRAMETINIB DIMETHYL SULFOXIDE
     Indication: Metastatic malignant melanoma
     Dosage: 2 MG, QD
     Route: 048
     Dates: start: 2021
  3. IRON DEXTRAN [Concomitant]
     Active Substance: IRON DEXTRAN
     Indication: Anaemia
     Dosage: 5 ML
     Route: 042
  4. EPREX [Concomitant]
     Active Substance: ERYTHROPOIETIN
     Indication: Anaemia
     Dosage: 40000 UNK (40 THOUSAND UNITS)
     Route: 058

REACTIONS (8)
  - Metastatic malignant melanoma [Fatal]
  - Malignant neoplasm progression [Fatal]
  - Metastases to lung [Fatal]
  - Metastases to liver [Fatal]
  - Mediastinum neoplasm [Fatal]
  - Hepatic lesion [Fatal]
  - Metastases to spleen [Fatal]
  - Metastases to bone [Fatal]

NARRATIVE: CASE EVENT DATE: 20210501
